FAERS Safety Report 4557160-1 (Version None)
Quarter: 2005Q1

REPORT INFORMATION
  Report Type: 
  Country: None (occurrence: None)
  Receive Date: 20050118
  Receipt Date: 20050111
  Transmission Date: 20050727
  Serious: Yes (Other)
  Sender: FDA-Public Use
  Company Number: 200510074GDS

PATIENT
  Age: 83 Year
  Sex: Male

DRUGS (10)
  1. MOXIFLOXACIN [Suspect]
     Indication: BRONCHITIS CHRONIC
     Dosage: 400 MG, TOTAL DAILY, ORAL
     Route: 048
  2. MOXIFLOXACIN [Suspect]
     Indication: PNEUMONIA BACTERIAL
     Dosage: 400 MG, TOTAL DAILY, ORAL
     Route: 048
  3. WARFARIN SODIUM [Suspect]
     Indication: ATRIAL FIBRILLATION
     Dosage: 4 MG, TOTAL DAILY
  4. PREDNISONE [Concomitant]
  5. THEOPHYLLINE [Concomitant]
  6. VERAPAMIL [Concomitant]
  7. ALBUTEROL [Concomitant]
  8. IPATROPIUM BROMIDE [Concomitant]
  9. FLUTICASONE PROPIONATE [Concomitant]
  10. OXAZEPAM [Concomitant]

REACTIONS (5)
  - CHRONIC OBSTRUCTIVE PULMONARY DISEASE [None]
  - DRUG INTERACTION [None]
  - HAEMOGLOBIN DECREASED [None]
  - INTERNATIONAL NORMALISED RATIO INCREASED [None]
  - UPPER GASTROINTESTINAL HAEMORRHAGE [None]
